FAERS Safety Report 13393387 (Version 2)
Quarter: 2017Q2

REPORT INFORMATION
  Report Type: Spontaneous
  Country: CA (occurrence: CA)
  Receive Date: 20170331
  Receipt Date: 20170627
  Transmission Date: 20170830
  Serious: Yes (Other)
  Sender: FDA-Public Use
  Company Number: CA-PFIZER INC-2017139203

PATIENT
  Age: 48 Year
  Sex: Female
  Weight: 121 kg

DRUGS (12)
  1. TEMAZEPAM. [Concomitant]
     Active Substance: TEMAZEPAM
     Dosage: 15 MG - 30 MG, AS NEEDED
  2. VITAMIN D /00107901/ [Concomitant]
     Active Substance: ERGOCALCIFEROL
     Dosage: UNK UNK, DAILY
  3. METHOTREXATE SODIUM. [Suspect]
     Active Substance: METHOTREXATE SODIUM
     Dosage: 20 MG, WEEKLY (TUESDAY)
     Route: 058
  4. PROXETINE [Concomitant]
     Dosage: 30 MG, DAILY
  5. PANTOPRAZOLE [Concomitant]
     Active Substance: PANTOPRAZOLE
     Dosage: 40 MG, 2X/DAY
  6. EMTEC [Concomitant]
     Dosage: 30 MG, AS NEEDED
  7. APO-SUCRALFATE [Concomitant]
     Dosage: 1 G, 2X/DAY
     Dates: start: 20161221
  8. INFLECTRA [Suspect]
     Active Substance: INFLIXIMAB-DYYB
     Indication: RHEUMATOID ARTHRITIS
     Dosage: 400 MG, EACH 0, 2, 6 WEEKS, THEN EVERY 8 WEEKS FOR 11 MONTHS
     Route: 042
     Dates: start: 20170314
  9. FOLIC ACID. [Concomitant]
     Active Substance: FOLIC ACID
     Dosage: UNK UNK, DAILY
  10. CANDESARTAN. [Concomitant]
     Active Substance: CANDESARTAN
     Dosage: 12.5 MG, DAILY
     Dates: start: 201601
  11. PREDNISONE. [Concomitant]
     Active Substance: PREDNISONE
     Dosage: 20 MG, UNK
     Dates: start: 20170228
  12. BISOPROLOL [Concomitant]
     Active Substance: BISOPROLOL
     Dosage: 100 MG, DAILY
     Dates: start: 201601

REACTIONS (1)
  - Heart rate decreased [Unknown]
